FAERS Safety Report 4546698-9 (Version None)
Quarter: 2005Q1

REPORT INFORMATION
  Report Type: 
  Country: None (occurrence: None)
  Receive Date: 20050105
  Receipt Date: 20041220
  Transmission Date: 20050727
  Serious: Yes (Death)
  Sender: FDA-Public Use
  Company Number: S04-FRA-08293-01

PATIENT
  Age: 74 Year
  Sex: Female

DRUGS (3)
  1. CITALOPRAM HYDROBROMIDE [Suspect]
  2. FLECAINIDE ACETATE [Suspect]
  3. TERCIAN (CYAMEMAZINE) [Concomitant]

REACTIONS (4)
  - ABNORMAL BEHAVIOUR [None]
  - DRUG TOXICITY [None]
  - FALL [None]
  - RENAL FAILURE ACUTE [None]
